FAERS Safety Report 21398286 (Version 2)
Quarter: 2022Q4

REPORT INFORMATION
  Report Type: Spontaneous
  Country: JP (occurrence: JP)
  Receive Date: 20220930
  Receipt Date: 20221006
  Transmission Date: 20230113
  Serious: Yes (Hospitalization)
  Sender: FDA-Public Use
  Company Number: JP-ABBVIE-22K-087-4529191-00

PATIENT
  Age: 73 Year
  Sex: Male

DRUGS (2)
  1. RINVOQ [Suspect]
     Active Substance: UPADACITINIB
     Indication: Rheumatoid arthritis
     Route: 048
     Dates: start: 20211103, end: 20220509
  2. RINVOQ [Suspect]
     Active Substance: UPADACITINIB
     Indication: Rheumatoid arthritis
     Route: 048
     Dates: start: 20220517

REACTIONS (1)
  - Pneumocystis jirovecii pneumonia [Recovered/Resolved]

NARRATIVE: CASE EVENT DATE: 20220309
